FAERS Safety Report 9895891 (Version 2)
Quarter: 2014Q1

REPORT INFORMATION
  Report Type: Spontaneous
  Country: US (occurrence: US)
  Receive Date: 20140213
  Receipt Date: 20140213
  Transmission Date: 20141002
  Serious: No
  Sender: FDA-Public Use
  Company Number: US-BRISTOL-MYERS SQUIBB COMPANY-17301854

PATIENT
  Age: 60 Year
  Sex: Female
  Weight: 63.04 kg

DRUGS (1)
  1. ORENCIA FOR INJ [Suspect]
     Indication: RHEUMATOID ARTHRITIS
     Dosage: RECENT DOSE 9JAN13
     Route: 042

REACTIONS (1)
  - Nodule [Not Recovered/Not Resolved]
